FAERS Safety Report 12797775 (Version 1)
Quarter: 2016Q3

REPORT INFORMATION
  Report Type: Report from Study
  Country: US (occurrence: US)
  Receive Date: 20160930
  Receipt Date: 20160930
  Transmission Date: 20161109
  Serious: Yes (Hospitalization, Other)
  Sender: FDA-Public Use
  Company Number: US-TAKEDA-2016MPI008335

PATIENT
  Age: 18 Year
  Sex: Female
  Weight: 51.3 kg

DRUGS (21)
  1. VINCRISTINE [Suspect]
     Active Substance: VINCRISTINE
     Dosage: 1.5 MG/M2, UNK
     Route: 042
     Dates: end: 20160913
  2. CYTARABINE. [Suspect]
     Active Substance: CYTARABINE
     Dosage: 75 MG/M2, UNK
     Route: 065
     Dates: end: 20160311
  3. MERCAPTOPURINE. [Suspect]
     Active Substance: MERCAPTOPURINE
     Dosage: 25 MG/M2, UNK
     Route: 048
     Dates: end: 20160808
  4. VELCADE [Suspect]
     Active Substance: BORTEZOMIB
     Dosage: 1 MG/M2, UNK
     Route: 042
  5. METHOTREXATE. [Suspect]
     Active Substance: METHOTREXATE
     Dosage: 5000 MG/M2, UNK
     Route: 042
     Dates: end: 20160829
  6. PEGASPARGASE [Suspect]
     Active Substance: PEGASPARGASE
     Indication: PRECURSOR T-LYMPHOBLASTIC LYMPHOMA/LEUKAEMIA
     Dosage: UNK
     Route: 042
     Dates: start: 20151217
  7. CYTARABINE. [Suspect]
     Active Substance: CYTARABINE
     Indication: PRECURSOR T-LYMPHOBLASTIC LYMPHOMA/LEUKAEMIA
     Dosage: UNK
     Route: 037
     Dates: start: 20151217
  8. VELCADE [Suspect]
     Active Substance: BORTEZOMIB
     Indication: PRECURSOR T-LYMPHOBLASTIC LYMPHOMA/LEUKAEMIA
     Dosage: UNK
     Route: 042
     Dates: start: 20151217
  9. VELCADE [Suspect]
     Active Substance: BORTEZOMIB
     Dosage: 1.3 MG/M2, UNK
     Route: 042
     Dates: start: 20160829, end: 20160916
  10. DEXAMETHASONE. [Suspect]
     Active Substance: DEXAMETHASONE
     Indication: PRECURSOR T-LYMPHOBLASTIC LYMPHOMA/LEUKAEMIA
     Dosage: UNK
     Route: 048
     Dates: start: 20151217
  11. METHOTREXATE. [Suspect]
     Active Substance: METHOTREXATE
     Indication: PRECURSOR T-LYMPHOBLASTIC LYMPHOMA/LEUKAEMIA
     Dosage: UNK
     Route: 037
     Dates: start: 20151217
  12. METHOTREXATE. [Suspect]
     Active Substance: METHOTREXATE
     Dosage: UNK
     Route: 037
     Dates: start: 20160829, end: 20160829
  13. CYCLOPHOSPHAMIDE. [Suspect]
     Active Substance: CYCLOPHOSPHAMIDE
     Indication: PRECURSOR T-LYMPHOBLASTIC LYMPHOMA/LEUKAEMIA
     Dosage: 1000 MG/M2, UNK
     Route: 042
     Dates: end: 20160302
  14. DOXORUBICIN [Suspect]
     Active Substance: DOXORUBICIN
     Indication: PRECURSOR T-LYMPHOBLASTIC LYMPHOMA/LEUKAEMIA
     Dosage: 25 MG/M2, UNK
     Route: 042
     Dates: start: 20160829, end: 20160913
  15. METHOTREXATE. [Suspect]
     Active Substance: METHOTREXATE
     Dosage: UNK
     Route: 037
  16. PEGASPARGASE [Suspect]
     Active Substance: PEGASPARGASE
     Dosage: UNK, UNK
     Route: 042
  17. PEGASPARGASE [Suspect]
     Active Substance: PEGASPARGASE
     Dosage: UNK
     Route: 042
     Dates: start: 20160829, end: 20160916
  18. DAUNORUBICIN [Suspect]
     Active Substance: DAUNORUBICIN
     Dosage: UNK
     Route: 042
     Dates: start: 20151217, end: 20160107
  19. MERCAPTOPURINE. [Suspect]
     Active Substance: MERCAPTOPURINE
     Indication: PRECURSOR T-LYMPHOBLASTIC LYMPHOMA/LEUKAEMIA
     Dosage: 60 MG/M2, UNK
     Route: 048
  20. DEXAMETHASONE. [Suspect]
     Active Substance: DEXAMETHASONE
     Dosage: 5 MG/M2, UNK
     Route: 065
     Dates: start: 20160829, end: 20160916
  21. VINCRISTINE [Suspect]
     Active Substance: VINCRISTINE
     Indication: PRECURSOR T-LYMPHOBLASTIC LYMPHOMA/LEUKAEMIA
     Dosage: UNK
     Route: 042
     Dates: start: 20151217

REACTIONS (8)
  - Blood creatine phosphokinase increased [Not Recovered/Not Resolved]
  - Acute kidney injury [Not Recovered/Not Resolved]
  - Hypotension [Not Recovered/Not Resolved]
  - Respiratory failure [Not Recovered/Not Resolved]
  - Hypocalcaemia [Not Recovered/Not Resolved]
  - Febrile neutropenia [Not Recovered/Not Resolved]
  - Sepsis [Not Recovered/Not Resolved]
  - Pyrexia [Not Recovered/Not Resolved]

NARRATIVE: CASE EVENT DATE: 20160917
